FAERS Safety Report 8518346-4 (Version None)
Quarter: 2012Q3

REPORT INFORMATION
  Report Type: 
  Country: None (occurrence: None)
  Receive Date: 20120718
  Receipt Date: 20120306
  Transmission Date: 20120928
  Serious: No
  Sender: FDA-Public Use
  Company Number: US-BRISTOL-MYERS SQUIBB COMPANY-16391948

PATIENT
  Age: 88 Year
  Sex: Male
  Weight: 54 kg

DRUGS (8)
  1. COUMADIN [Suspect]
     Dosage: 1DF:1 TABS NOW RECEIVING 1TABS 2 DAYS PER WEEK AND HALF TABS 5 DAYS PER WEEK
     Route: 065
     Dates: start: 20120101
  2. SIMVASTATIN [Concomitant]
  3. PLAVIX [Suspect]
     Indication: STENT PLACEMENT
     Dosage: FILM COATED TABS
     Route: 048
     Dates: start: 20080101
  4. RAMIPRIL [Concomitant]
  5. PLAVIX [Suspect]
     Indication: MYOCARDIAL INFARCTION
     Dosage: FILM COATED TABS
     Route: 048
     Dates: start: 20080101
  6. SYNTHROID [Concomitant]
     Route: 065
  7. VITAMIN [Concomitant]
  8. VITAMIN D [Concomitant]

REACTIONS (1)
  - RASH MORBILLIFORM [None]
